FAERS Safety Report 6778733-1 (Version None)
Quarter: 2010Q2

REPORT INFORMATION
  Report Type: 
  Country: None (occurrence: None)
  Receive Date: 20100618
  Receipt Date: 20100609
  Transmission Date: 20101027
  Serious: Yes (Death)
  Sender: FDA-Public Use
  Company Number: GB-TEVA-237350ISR

PATIENT
  Age: 67 Year
  Sex: Female

DRUGS (3)
  1. AMITRIPTYLINE [Suspect]
     Indication: DEPRESSION
  2. FENTANYL [Interacting]
     Indication: PAIN
     Dosage: 100 UG/HR
     Route: 061
     Dates: start: 20080101
  3. FENTANYL [Interacting]
     Dosage: 100 UG/HR
     Route: 061
     Dates: start: 20080519

REACTIONS (2)
  - DRUG TOXICITY [None]
  - MYOCARDIAL ISCHAEMIA [None]
